FAERS Safety Report 18975350 (Version 1)
Quarter: 2021Q1

REPORT INFORMATION
  Report Type: Spontaneous
  Country: CN (occurrence: CN)
  Receive Date: 20210305
  Receipt Date: 20210305
  Transmission Date: 20210420
  Serious: Yes (Hospitalization)
  Sender: FDA-Public Use
  Company Number: NVSC2021CN048490

PATIENT
  Age: 33 Year
  Sex: Female
  Weight: 50 kg

DRUGS (1)
  1. TEGRETOL [Suspect]
     Active Substance: CARBAMAZEPINE
     Indication: IIIRD NERVE PARALYSIS
     Dosage: 0.200 G, BID
     Route: 048
     Dates: start: 20210125, end: 20210209

REACTIONS (1)
  - Drug eruption [Recovering/Resolving]

NARRATIVE: CASE EVENT DATE: 20210206
